FAERS Safety Report 9690216 (Version 1)
Quarter: 2013Q4

REPORT INFORMATION
  Report Type: Report from Study
  Country: US (occurrence: US)
  Receive Date: 20131115
  Receipt Date: 20131115
  Transmission Date: 20140711
  Serious: Yes (Hospitalization, Other)
  Sender: FDA-Public Use
  Company Number: PHHY2013US129149

PATIENT
  Age: 73 Year
  Sex: Male
  Weight: 73 kg

DRUGS (9)
  1. EVEROLIMUS [Suspect]
     Indication: MANTLE CELL LYMPHOMA
     Dosage: 10 MG, DAILY
     Route: 048
     Dates: start: 20121011, end: 20121030
  2. EVEROLIMUS [Suspect]
     Indication: OFF LABEL USE
  3. IDELALISIB [Suspect]
     Indication: MANTLE CELL LYMPHOMA
     Dosage: 150 MG, BID
     Route: 048
     Dates: start: 20121011, end: 20121106
  4. VITAMIN D [Concomitant]
  5. LUNESTA [Concomitant]
  6. MULTI VITAMIN + MINERAL [Concomitant]
  7. PRILOSEC [Concomitant]
  8. PRAVASTATIN [Concomitant]
  9. TAMSULOSIN [Concomitant]

REACTIONS (18)
  - Pneumonitis [Recovered/Resolved]
  - Organising pneumonia [Recovered/Resolved]
  - Rhinorrhoea [Unknown]
  - Wheezing [Unknown]
  - Sputum discoloured [Unknown]
  - Cough [Unknown]
  - Chills [Unknown]
  - Dyspnoea [Recovering/Resolving]
  - Pyrexia [Unknown]
  - Diarrhoea [Unknown]
  - Lung infiltration [Unknown]
  - Atrial fibrillation [Unknown]
  - Tachycardia [Unknown]
  - Thrombocytopenia [Unknown]
  - Pleural effusion [Unknown]
  - Hypopnoea [Unknown]
  - Dyspnoea exertional [Recovered/Resolved]
  - Productive cough [Unknown]
